FAERS Safety Report 7935017-3 (Version None)
Quarter: 2011Q4

REPORT INFORMATION
  Report Type: 
  Country: None (occurrence: None)
  Receive Date: 20111122
  Receipt Date: 20111117
  Transmission Date: 20120403
  Serious: Yes (Life-Threatening, Hospitalization)
  Sender: FDA-Public Use
  Company Number: IL-UCBSA-8051954

PATIENT
  Age: 67 Year
  Sex: Female
  Weight: 65 kg

DRUGS (12)
  1. CERTOLIZUMAB PEGOL [Suspect]
     Indication: RHEUMATOID ARTHRITIS
     Route: 058
     Dates: start: 20050831, end: 20060816
  2. CERTOLIZUMAB PEGOL [Suspect]
     Route: 058
     Dates: start: 20060830, end: 20071107
  3. FOLIC ACID [Concomitant]
     Indication: RHEUMATOID ARTHRITIS
     Route: 048
     Dates: start: 20011201
  4. RALOXIFENE HCL [Concomitant]
     Indication: OSTEOPOROSIS
     Route: 048
     Dates: start: 20090429
  5. ASPIRIN [Concomitant]
     Indication: HEADACHE
     Route: 048
     Dates: start: 20070118
  6. PRILOSEC [Concomitant]
     Indication: GASTRIC ULCER
     Route: 048
     Dates: start: 20070727
  7. CERTOLIZUMAB PEGOL [Suspect]
     Route: 058
     Dates: start: 20071205, end: 20090909
  8. CALCIUM CARBONATE + VIT D [Concomitant]
     Indication: OSTEOPOROSIS
     Route: 048
     Dates: start: 20030413
  9. METHOTREXATE [Concomitant]
     Indication: RHEUMATOID ARTHRITIS
     Route: 030
     Dates: start: 20061123
  10. NIFEDIPINE [Concomitant]
     Indication: HYPERTENSION
     Route: 048
     Dates: start: 20050701
  11. VITAMIN D [Concomitant]
     Indication: VITAMIN D DEFICIENCY
     Dosage: 8 DROPS DAILY DOSE FREQ.: DAILY
     Route: 048
     Dates: start: 20090422
  12. MULTIVITAMIN 30 [Concomitant]
     Indication: PROPHYLAXIS
     Dosage: 1 TABLET DAILY
     Route: 048
     Dates: start: 20040530

REACTIONS (1)
  - CEREBRAL HAEMORRHAGE [None]
